FAERS Safety Report 4778478-3 (Version None)
Quarter: 2005Q3

REPORT INFORMATION
  Report Type: 
  Country: None (occurrence: None)
  Receive Date: 20050923
  Receipt Date: 20050923
  Transmission Date: 20060218
  Serious: Yes (Death)
  Sender: FDA-Public Use
  Company Number: None

PATIENT
  Age: 58 Year
  Sex: Male

DRUGS (6)
  1. ALLODERM [Suspect]
     Dates: start: 20050715
  2. ALLODERM [Suspect]
  3. ALLODERM [Suspect]
  4. ALLODERM [Suspect]
  5. ALLODERM [Suspect]
  6. ALLODERM [Suspect]

REACTIONS (3)
  - GUN SHOT WOUND [None]
  - HERNIA REPAIR [None]
  - INJURY [None]
